FAERS Safety Report 6473522-X (Version None)
Quarter: 2009Q4

REPORT INFORMATION
  Report Type: 
  Country: None (occurrence: None)
  Receive Date: 20091204
  Receipt Date: 20090106
  Transmission Date: 20100525
  Serious: Yes (Other)
  Sender: FDA-Public Use
  Company Number: US-ELI_LILLY_AND_COMPANY-US200811005487

PATIENT
  Sex: Female
  Weight: 86.168 kg

DRUGS (2)
  1. FORTEO [Suspect]
     Indication: OSTEOPOROSIS
     Dosage: UNK, UNK
     Dates: start: 20061101
  2. PREDNISONE [Concomitant]
     Dosage: HIGH DOSES

REACTIONS (1)
  - ILIUM FRACTURE [None]
